FAERS Safety Report 17680543 (Version 1)
Quarter: 2020Q2

REPORT INFORMATION
  Report Type: Spontaneous
  Country: US (occurrence: US)
  Receive Date: 20200417
  Receipt Date: 20200417
  Transmission Date: 20200714
  Serious: Yes (Other)
  Sender: FDA-Public Use
  Company Number: None

PATIENT
  Age: 28 Year
  Sex: Female
  Weight: 132.75 kg

DRUGS (1)
  1. CUTAQUIG [Suspect]
     Active Substance: HUMAN IMMUNOGLOBULIN G
     Indication: IMMUNODEFICIENCY
     Dosage: ?          QUANTITY:1 VIALS FOR 20G;OTHER FREQUENCY:ONCE A WEEK;?
     Route: 058
     Dates: start: 20200311, end: 20200416

REACTIONS (3)
  - Vision blurred [None]
  - Swelling face [None]
  - Infusion related reaction [None]

NARRATIVE: CASE EVENT DATE: 20200416
